FAERS Safety Report 5815685-2 (Version None)
Quarter: 2008Q3

REPORT INFORMATION
  Report Type: 
  Country: None (occurrence: None)
  Receive Date: 20080716
  Receipt Date: 20080707
  Transmission Date: 20090109
  Serious: Yes (Other)
  Sender: FDA-Public Use
  Company Number: 2008017789

PATIENT
  Age: 7 Year
  Sex: Male
  Weight: 14.5 kg

DRUGS (3)
  1. BENADRYL [Suspect]
     Indication: HYPERSENSITIVITY
     Dosage: 12.5 MG ONE TIME 1X A DAY (ONE TIME), ORAL
     Route: 048
     Dates: start: 20080703, end: 20080703
  2. ZYRTEC [Concomitant]
  3. MONTELUKAST SODIUM [Concomitant]

REACTIONS (3)
  - DYSPNOEA [None]
  - HYPOAESTHESIA ORAL [None]
  - PHARYNGEAL HYPOAESTHESIA [None]
